FAERS Safety Report 20701442 (Version 2)
Quarter: 2022Q2

REPORT INFORMATION
  Report Type: Spontaneous
  Country: CA (occurrence: CA)
  Receive Date: 20220412
  Receipt Date: 20220527
  Transmission Date: 20220721
  Serious: Yes (Death, Other)
  Sender: FDA-Public Use
  Company Number: CA-SAMSUNG BIOEPIS-SB-2022-08443

PATIENT
  Age: 73 Year
  Sex: Female
  Weight: 80 kg

DRUGS (4)
  1. INFLIXIMAB [Suspect]
     Active Substance: INFLIXIMAB
     Indication: Neurosarcoidosis
     Dosage: 5.0 MG/KG
     Route: 042
  2. PREDNISONE [Suspect]
     Active Substance: PREDNISONE
     Indication: Product used for unknown indication
     Route: 065
  3. METHOTREXATE [Concomitant]
     Active Substance: METHOTREXATE
     Indication: Product used for unknown indication
     Dosage: UNKNOWN
     Route: 048
  4. METHOTREXATE [Concomitant]
     Active Substance: METHOTREXATE
     Route: 065

REACTIONS (10)
  - Death [Fatal]
  - Blood pressure increased [Fatal]
  - Blood pressure systolic increased [Fatal]
  - Fluid retention [Fatal]
  - Peripheral swelling [Fatal]
  - Weight fluctuation [Fatal]
  - Heart rate increased [Recovered/Resolved]
  - Incorrect dose administered [Fatal]
  - Off label use [Fatal]
  - Product use in unapproved indication [Unknown]
